FAERS Safety Report 6842405-5 (Version None)
Quarter: 2010Q3

REPORT INFORMATION
  Report Type: 
  Country: None (occurrence: None)
  Receive Date: 20100714
  Receipt Date: 20070829
  Transmission Date: 20110219
  Serious: No
  Sender: FDA-Public Use
  Company Number: US-PFIZER INC-2007062502

PATIENT
  Sex: Female
  Weight: 90.909 kg

DRUGS (9)
  1. CHANTIX [Suspect]
     Indication: SMOKING CESSATION THERAPY
     Dates: start: 20070201, end: 20070701
  2. PROVIGIL [Concomitant]
  3. ADDERALL 10 [Concomitant]
  4. REQUIP [Concomitant]
  5. SERETIDE MITE [Concomitant]
  6. TIOTROPIUM BROMIDE [Concomitant]
  7. SYNTHROID [Concomitant]
  8. EFFEXOR [Concomitant]
  9. PREVACID [Concomitant]

REACTIONS (5)
  - ABDOMINAL DISCOMFORT [None]
  - GASTROOESOPHAGEAL REFLUX DISEASE [None]
  - HIATUS HERNIA [None]
  - NAUSEA [None]
  - VOMITING [None]
